FAERS Safety Report 8622959-9 (Version None)
Quarter: 2012Q3

REPORT INFORMATION
  Report Type: 
  Country: None (occurrence: None)
  Receive Date: 20120827
  Receipt Date: 20120822
  Transmission Date: 20120928
  Serious: Yes (Other)
  Sender: FDA-Public Use
  Company Number: PHHY2012BR073110

PATIENT
  Sex: Male

DRUGS (2)
  1. EXELON [Suspect]
     Indication: DEPRESSION
     Dosage: 3 MG, DAILY
     Route: 048
  2. EXELON [Suspect]
     Indication: CENTRAL NERVOUS SYSTEM LESION

REACTIONS (1)
  - CEREBROVASCULAR ACCIDENT [None]
